FAERS Safety Report 10058588 (Version 1)
Quarter: 2014Q2

REPORT INFORMATION
  Report Type: Spontaneous
  Country: US (occurrence: US)
  Receive Date: 20140404
  Receipt Date: 20140404
  Transmission Date: 20141212
  Serious: No
  Sender: FDA-Public Use
  Company Number: US-MALLINCKRODT-T201304681

PATIENT
  Age: 86 Year
  Sex: Female
  Weight: 63.95 kg

DRUGS (8)
  1. RESTORIL [Suspect]
     Indication: SLEEP DISORDER
     Dosage: 15 MG, QHS
     Route: 048
     Dates: start: 201307
  2. ASPIRIN [Concomitant]
     Dosage: UNK
  3. LISINOPRIL [Concomitant]
     Dosage: UNK
  4. CALCIUM [Concomitant]
     Dosage: UNK
  5. MULTIVITAMIN                       /00097801/ [Concomitant]
     Dosage: UNK
  6. CILOSTAZOL [Concomitant]
     Dosage: UNK
  7. METFORMIN [Concomitant]
     Indication: DIABETES MELLITUS
     Dosage: UNK
  8. MELOXICAM [Concomitant]
     Dosage: UNK

REACTIONS (6)
  - Increased appetite [Not Recovered/Not Resolved]
  - Nervousness [Not Recovered/Not Resolved]
  - Fatigue [Not Recovered/Not Resolved]
  - Dizziness [Not Recovered/Not Resolved]
  - Headache [Not Recovered/Not Resolved]
  - Drug effect decreased [Not Recovered/Not Resolved]
